FAERS Safety Report 13261951 (Version 3)
Quarter: 2017Q2

REPORT INFORMATION
  Report Type: Report from Study
  Country: US (occurrence: US)
  Receive Date: 20170222
  Receipt Date: 20170425
  Transmission Date: 20170830
  Serious: Yes (Hospitalization)
  Sender: FDA-Public Use
  Company Number: US-ACTELION-A-US2016-141232

PATIENT
  Age: 68 Year
  Sex: Female

DRUGS (3)
  1. OPSUMIT [Suspect]
     Active Substance: MACITENTAN
     Indication: PULMONARY ARTERIAL HYPERTENSION
     Dosage: 10 MG, QD
     Route: 048
     Dates: start: 20160629
  2. RIOCIGUAT [Concomitant]
     Active Substance: RIOCIGUAT
  3. REMODULIN [Concomitant]
     Active Substance: TREPROSTINIL

REACTIONS (13)
  - Malaise [Unknown]
  - Coagulation test abnormal [Unknown]
  - Pleural effusion [Recovered/Resolved]
  - Dyspnoea [Recovered/Resolved]
  - Fluid overload [Unknown]
  - Fluid retention [Unknown]
  - Device alarm issue [Unknown]
  - Throat irritation [Unknown]
  - Cough [Unknown]
  - Device related thrombosis [Unknown]
  - Asthenia [Unknown]
  - Catheter placement [Unknown]
  - Chest pain [Unknown]

NARRATIVE: CASE EVENT DATE: 20160807
